FAERS Safety Report 7054270-4 (Version None)
Quarter: 2010Q4

REPORT INFORMATION
  Report Type: 
  Country: None (occurrence: None)
  Receive Date: 20101020
  Receipt Date: 20101015
  Transmission Date: 20110411
  Serious: Yes (Hospitalization)
  Sender: FDA-Public Use
  Company Number: AU-EISAI INC.-E2020-07650-CLI-AU

PATIENT
  Sex: Female

DRUGS (2)
  1. ARICEPT [Suspect]
     Route: 048
     Dates: start: 20041201
  2. ZOLOFT [Suspect]
     Route: 048
     Dates: start: 20030101

REACTIONS (1)
  - HYSTEROSCOPY [None]
